FAERS Safety Report 5384828-X (Version None)
Quarter: 2007Q3

REPORT INFORMATION
  Report Type: 
  Country: None (occurrence: None)
  Receive Date: 20070711
  Receipt Date: 20070709
  Transmission Date: 20080115
  Serious: Yes (Hospitalization)
  Sender: FDA-Public Use
  Company Number: IT-MERCK-0706ITA00033

PATIENT
  Age: 72 Year
  Sex: Female

DRUGS (9)
  1. SINGULAIR [Suspect]
     Indication: ASTHMA
     Route: 048
     Dates: start: 20070427, end: 20070517
  2. LEVOFLOXACIN [Concomitant]
     Route: 048
     Dates: start: 20070426, end: 20070503
  3. PREDNISONE [Concomitant]
     Route: 048
     Dates: start: 20070426, end: 20070430
  4. TIOTROPIUM BROMIDE [Concomitant]
     Route: 065
  5. BUDESONIDE AND FORMOTEROL FUMARATE [Concomitant]
     Route: 065
  6. FORMOTEROL FUMARATE [Concomitant]
     Route: 065
  7. PANTOPRAZOLE [Concomitant]
     Route: 065
  8. LORAZEPAM [Concomitant]
     Route: 065
  9. ALBUTEROL SULFATE [Concomitant]
     Route: 065

REACTIONS (2)
  - LEUKOPENIA [None]
  - NEUTROPENIA [None]
